FAERS Safety Report 4988148-4 (Version None)
Quarter: 2006Q2

REPORT INFORMATION
  Report Type: 
  Country: None (occurrence: None)
  Receive Date: 20060501
  Receipt Date: 20050923
  Transmission Date: 20061013
  Serious: Yes (Hospitalization)
  Sender: FDA-Public Use
  Company Number: US-MERCK-0509USA03971

PATIENT
  Sex: Female
  Weight: 77 kg

DRUGS (1)
  1. VIOXX [Suspect]
     Indication: OSTEOARTHRITIS
     Route: 048
     Dates: start: 20010412, end: 20040930

REACTIONS (4)
  - ANKLE FRACTURE [None]
  - BRAIN NEOPLASM [None]
  - STAPHYLOCOCCAL INFECTION [None]
  - THROMBOSIS [None]
